FAERS Safety Report 5413170-3 (Version None)
Quarter: 2007Q3

REPORT INFORMATION
  Report Type: 
  Country: None (occurrence: None)
  Receive Date: 20070810
  Receipt Date: 20070729
  Transmission Date: 20080115
  Serious: Yes (Other)
  Sender: FDA-Public Use
  Company Number: 07H-163-0312957-00

PATIENT
  Age: 2 Year

DRUGS (3)
  1. FENTANYL [Suspect]
     Indication: SEDATIVE THERAPY
  2. MIDAZOLAM HYDROCHLORIDE [Concomitant]
     Indication: SEDATIVE THERAPY
  3. PENTOBARBITAL CAP [Concomitant]
     Indication: SEDATIVE THERAPY

REACTIONS (4)
  - DRUG INTERACTION [None]
  - DYSPNOEA [None]
  - HYPOXIA [None]
  - STRIDOR [None]
